FAERS Safety Report 18072471 (Version 1)
Quarter: 2020Q3

REPORT INFORMATION
  Report Type: Spontaneous
  Country: CA (occurrence: CA)
  Receive Date: 20200727
  Receipt Date: 20200727
  Transmission Date: 20201103
  Serious: Yes (Hospitalization, Other)
  Sender: FDA-Public Use
  Company Number: CA-AXELLIA-003281

PATIENT
  Age: 6 Month
  Sex: Female

DRUGS (8)
  1. CEFOTAXIME [Suspect]
     Active Substance: CEFOTAXIME SODIUM
     Indication: MENINGITIS
     Dosage: 3 WEEKS OF EMPIRIC CEFOTAXIME AND VANCOMYCIN
  2. RIFAMPICIN [Suspect]
     Active Substance: RIFAMPIN
     Indication: MENINGITIS
  3. VANCOMYCIN [Suspect]
     Active Substance: VANCOMYCIN
     Indication: MENINGITIS
     Dosage: 3 WEEKS OF EMPIRIC CEFOTAXIME AND VANCOMYCIN
  4. VANCOMYCIN [Suspect]
     Active Substance: VANCOMYCIN
     Indication: PLEOCYTOSIS
     Dosage: COMPLETING HER COURSE OF VANCOMYCIN,
  5. CEFOTAXIME [Suspect]
     Active Substance: CEFOTAXIME SODIUM
     Indication: MENINGITIS
     Dosage: 3 WEEKS OF EMPIRIC CEFOTAXIME AND VANCOMYCIN
  6. VANCOMYCIN [Suspect]
     Active Substance: VANCOMYCIN
     Indication: MENINGITIS
     Dosage: 3 WEEKS OF EMPIRIC CEFOTAXIME AND VANCOMYCIN
  7. AMPICILLIN [Suspect]
     Active Substance: AMPICILLIN
     Indication: MENINGITIS HAEMOPHILUS
  8. RIFAMPICIN [Suspect]
     Active Substance: RIFAMPIN
     Indication: PLEOCYTOSIS

REACTIONS (1)
  - Candida infection [Recovered/Resolved]
